FAERS Safety Report 9788223 (Version 1)
Quarter: 2013Q4

REPORT INFORMATION
  Report Type: Spontaneous
  Country: US (occurrence: None)
  Receive Date: 20131227
  Receipt Date: 20131227
  Transmission Date: 20140711
  Serious: Yes (Hospitalization)
  Sender: FDA-Public Use
  Company Number: None

PATIENT
  Age: 71 Year
  Sex: Male
  Weight: 115 kg

DRUGS (5)
  1. LOVENOX [Suspect]
     Indication: DEEP VEIN THROMBOSIS POSTOPERATIVE
     Dosage: RECENT
     Route: 058
  2. PRILOSEC [Concomitant]
  3. LISINOPRIL [Concomitant]
  4. SERTRALINE [Concomitant]
  5. TESTOSTERONE [Concomitant]

REACTIONS (3)
  - Gastrointestinal haemorrhage [None]
  - Haemorrhagic anaemia [None]
  - Procedural site reaction [None]
